FAERS Safety Report 7450804-6 (Version None)
Quarter: 2011Q2

REPORT INFORMATION
  Report Type: 
  Country: None (occurrence: None)
  Receive Date: 20110502
  Receipt Date: 20110427
  Transmission Date: 20111010
  Serious: Yes (Other)
  Sender: FDA-Public Use
  Company Number: FR-PFIZER INC-2011090268

PATIENT
  Age: 95 Year
  Sex: Male

DRUGS (11)
  1. ACETAMINOPHEN [Concomitant]
     Dosage: UNK, AS NEEDED
  2. KARDEGIC [Concomitant]
     Dosage: 75 MG, 1X/DAY
  3. XYZAL [Concomitant]
     Dosage: 5 MG, 1X/DAY
  4. LASIX [Suspect]
     Indication: OEDEMA PERIPHERAL
     Dosage: 40 MG, 2X/DAY
     Route: 048
     Dates: start: 20090407
  5. SERESTA [Concomitant]
     Dosage: HALF OF SERESTA 50 DF AND 10 DF PER DAY
  6. ALDACTONE [Suspect]
     Indication: HYPERTENSION
     Dosage: 50 MG, 1X/DAY
     Route: 048
     Dates: start: 20090114
  7. AMLODIPINE [Suspect]
     Indication: HYPERTENSION
     Dosage: 5 MG, 1X/DAY
     Route: 048
     Dates: start: 20090121
  8. TAMSULOSIN HCL [Concomitant]
     Dosage: 0.4 MG, 1X/DAY
  9. DIFFU K [Concomitant]
     Dosage: 1 DF, 1X/DAY
  10. FORLAX [Concomitant]
     Dosage: UNK, AS NEEDED
  11. IMOVANE [Concomitant]
     Dosage: HALF DOSE FORM (DF) PER DAY

REACTIONS (3)
  - OEDEMA [None]
  - HYPONATRAEMIA [None]
  - OEDEMA PERIPHERAL [None]
